FAERS Safety Report 6466289-2 (Version None)
Quarter: 2009Q4

REPORT INFORMATION
  Report Type: 
  Country: None (occurrence: None)
  Receive Date: 20091202
  Receipt Date: 20091127
  Transmission Date: 20100525
  Serious: Yes (Death, Life-Threatening, Hospitalization, Other)
  Sender: FDA-Public Use
  Company Number: PHHY2009JP52376

PATIENT
  Sex: Male

DRUGS (7)
  1. ZOLEDRONATE T29581+ [Suspect]
     Indication: METASTASES TO BONE
     Dosage: 4MG EVERY THREE WEEKS
     Route: 042
     Dates: start: 20080131, end: 20080420
  2. VOLTAREN [Concomitant]
     Dosage: 150 MG, UNK
     Route: 054
     Dates: start: 20080205
  3. MEFENAMIC ACID [Concomitant]
     Dosage: 1 DF, UNK
     Route: 048
  4. MUCOSTA [Concomitant]
     Dosage: 9 DF, UNK
     Route: 048
  5. AMINO ACIDS NOS W/CARBOHYD. NOS/ELECTROL. NOS [Concomitant]
     Dosage: 1000 ML, UNK
     Route: 042
  6. CALCICOL [Concomitant]
     Dosage: 1 DF, UNK
     Route: 042
     Dates: start: 20080206, end: 20080712
  7. VITAMINS NOS [Concomitant]

REACTIONS (4)
  - ANAEMIA [None]
  - DEATH [None]
  - HYPOCALCAEMIA [None]
  - PLATELET COUNT DECREASED [None]
